FAERS Safety Report 18478345 (Version 1)
Quarter: 2020Q4

REPORT INFORMATION
  Report Type: Report from Study
  Country: HK (occurrence: HK)
  Receive Date: 20201109
  Receipt Date: 20201109
  Transmission Date: 20210114
  Serious: Yes (Other)
  Sender: FDA-Public Use
  Company Number: HK-AUROBINDO-AUR-APL-2020-056216

PATIENT

DRUGS (3)
  1. URSODIOL. [Concomitant]
     Active Substance: URSODIOL
     Indication: PROPHYLAXIS
     Dosage: UNK
     Route: 065
  2. MELPHALAN INJECTION [Suspect]
     Active Substance: MELPHALAN
     Indication: NEUROBLASTOMA
     Dosage: 4 MILLIGRAM/KILOGRAM, (BOLUS DOSE DAY 1)
     Route: 042
  3. BUSULFAN. [Suspect]
     Active Substance: BUSULFAN
     Indication: NEUROBLASTOMA
     Dosage: UNK
     Route: 042

REACTIONS (4)
  - Sepsis [Unknown]
  - Pseudomonas infection [Unknown]
  - Toxicity to various agents [Unknown]
  - Product use in unapproved indication [Unknown]
